FAERS Safety Report 11146323 (Version 1)
Quarter: 2015Q2

REPORT INFORMATION
  Report Type: Spontaneous
  Country: FR (occurrence: FR)
  Receive Date: 20150528
  Receipt Date: 20150528
  Transmission Date: 20150821
  Serious: Yes (Life-Threatening)
  Sender: FDA-Public Use
  Company Number: FR-PFIZER INC-2015179257

PATIENT
  Age: 75 Year
  Sex: Male

DRUGS (6)
  1. ZYVOXID [Suspect]
     Active Substance: LINEZOLID
     Indication: DEVICE RELATED INFECTION
     Dosage: 600 MG, 2X/DAY
     Route: 042
     Dates: start: 20150424
  2. ZYVOXID [Suspect]
     Active Substance: LINEZOLID
     Indication: PNEUMONIA
  3. INVANZ [Suspect]
     Active Substance: ERTAPENEM SODIUM
     Indication: DEVICE RELATED INFECTION
     Dosage: 2 G, DAILY
     Route: 042
     Dates: start: 20150424, end: 20150429
  4. INVANZ [Suspect]
     Active Substance: ERTAPENEM SODIUM
     Indication: PNEUMONIA
  5. RIFADINE [Suspect]
     Active Substance: RIFAMPIN
     Indication: DEVICE RELATED INFECTION
     Dosage: 600 MG, DAILY
     Route: 042
     Dates: start: 20150424
  6. RIFADINE [Suspect]
     Active Substance: RIFAMPIN
     Indication: PNEUMONIA

REACTIONS (2)
  - Myoclonus [Recovered/Resolved]
  - Seizure [Recovered/Resolved]

NARRATIVE: CASE EVENT DATE: 20150429
